FAERS Safety Report 13623243 (Version 2)
Quarter: 2017Q3

REPORT INFORMATION
  Report Type: Report from Study
  Country: US (occurrence: US)
  Receive Date: 20170607
  Receipt Date: 20170703
  Transmission Date: 20171127
  Serious: Yes (Hospitalization)
  Sender: FDA-Public Use
  Company Number: US-ACTELION-A-US2017-154748

PATIENT
  Age: 61 Year
  Sex: Female

DRUGS (9)
  1. OPSUMIT [Suspect]
     Active Substance: MACITENTAN
     Indication: PULMONARY HYPERTENSION
     Dosage: 10 MG, QD
     Route: 048
     Dates: start: 20170504, end: 20170606
  2. DECADRON [Concomitant]
     Active Substance: DEXAMETHASONE
     Dosage: 4 MG, UNK
  3. ATIVAN [Concomitant]
     Active Substance: LORAZEPAM
     Dosage: 0.5 MG, UNK
  4. LOVENOX [Concomitant]
     Active Substance: ENOXAPARIN SODIUM
     Dosage: 80 MG/0.8ML
  5. BACTRIM [Concomitant]
     Active Substance: SULFAMETHOXAZOLE\TRIMETHOPRIM
     Dosage: 160 - 800
  6. KEPPRA [Concomitant]
     Active Substance: LEVETIRACETAM
     Dosage: 1000 MG, UNK
  7. OXYCODONE [Concomitant]
     Active Substance: OXYCODONE
  8. SILDENAFIL. [Concomitant]
     Active Substance: SILDENAFIL
  9. LASIX [Concomitant]
     Active Substance: FUROSEMIDE

REACTIONS (2)
  - Brain neoplasm malignant [Recovering/Resolving]
  - Condition aggravated [Recovering/Resolving]

NARRATIVE: CASE EVENT DATE: 20170529
